FAERS Safety Report 8984627 (Version 2)
Quarter: 2013Q1

REPORT INFORMATION
  Report Type: Spontaneous
  Country: US (occurrence: US)
  Receive Date: 20121225
  Receipt Date: 20130105
  Transmission Date: 20140127
  Serious: Yes (Other)
  Sender: FDA-Public Use
  Company Number: US-JNJFOC-20121207688

PATIENT
  Age: 92 None
  Sex: Female

DRUGS (2)
  1. TYLOX [Suspect]
     Indication: PAIN
     Dosage: ONE CAPSULE, EVERY 4 HOURS
     Route: 048
     Dates: end: 20121210
  2. TYLOX [Suspect]
     Indication: ARTHRITIS
     Dosage: ONE CAPSULE, EVERY 4 HOURS
     Route: 048
     Dates: end: 20121210

REACTIONS (4)
  - Pelvic fracture [Not Recovered/Not Resolved]
  - Fall [Recovered/Resolved]
  - Bedridden [Not Recovered/Not Resolved]
  - Malaise [Not Recovered/Not Resolved]
